FAERS Safety Report 8490026-3 (Version None)
Quarter: 2012Q3

REPORT INFORMATION
  Report Type: 
  Country: None (occurrence: None)
  Receive Date: 20120705
  Receipt Date: 20120702
  Transmission Date: 20120928
  Serious: Yes (Death, Other)
  Sender: FDA-Public Use
  Company Number: US-JNJFOC-20120610741

PATIENT

DRUGS (33)
  1. PREDNISONE [Suspect]
     Indication: BURKITT'S LYMPHOMA
     Dosage: FOR 7 DAYS IN CYCLE 1
     Route: 065
  2. ETOPOSIDE [Suspect]
     Indication: BURKITT'S LYMPHOMA
     Dosage: ON DAYS 4 AND 5 OF CYCLE 2,4 AND 6
     Route: 042
  3. DEXAMETHASONE SODIUM PHOSPHATE [Suspect]
     Dosage: ON DAYS 1-5 OF CYCLE 2,4 AND 6
     Route: 042
  4. DEXAMETHASONE SODIUM PHOSPHATE [Suspect]
     Dosage: ON DAYS 1-5 OF CYCLE 2,4 AND 6
     Route: 042
  5. METHOTREXATE [Suspect]
     Indication: BURKITT'S LYMPHOMA
     Dosage: ON DAY 1 OF CYCLE 3,5 AND 7
     Route: 042
  6. METHOTREXATE [Suspect]
     Indication: BURKITT'S LEUKAEMIA
     Dosage: ON DAY 1 OF CYCLE 2,4 AND 6
     Route: 042
  7. VINCRISTINE [Suspect]
     Indication: BURKITT'S LYMPHOMA
     Dosage: ON DAY 1 OF CYCLE 3,5 AND 7
     Route: 042
  8. DEXAMETHASONE SODIUM PHOSPHATE [Suspect]
     Indication: BURKITT'S LEUKAEMIA
     Dosage: ON DAYS 1-5 OF CYCLE 3,5 AND 7
     Route: 042
  9. RITUXIMAB [Suspect]
     Dosage: ON DAY 8 FROM CYCLE 3 TO 7
     Route: 042
  10. RITUXIMAB [Suspect]
     Dosage: ON DAY 8 FROM CYCLE 3 TO 7
     Route: 042
  11. FILGRASTIM [Concomitant]
     Indication: PROPHYLAXIS
     Dosage: 5 MICROGRAM/KG/DAY FROM DAY 7 OF EACH CYCLE UNTIL THE ABSOLUTE NEUTROPHIL COUNT HAD RECOVERED
     Route: 058
  12. UNKNOWN MEDICATION [Concomitant]
     Indication: PROPHYLAXIS
     Dosage: TRIPLE INTRATHECAL THERAPY ON DAY 1 OF CYCLE 2-7 (6 TOTAL DOSES)
     Route: 039
  13. PREDNISONE [Suspect]
     Indication: BURKITT'S LEUKAEMIA
     Dosage: FOR 7 DAYS IN CYCLE 1
     Route: 065
  14. RITUXIMAB [Suspect]
     Indication: BURKITT'S LEUKAEMIA
     Dosage: DAY 8 ON CYCLE 2; DOAGE INCREASED TO 375 MG/M2 ON DAY 10 AND 12
     Route: 042
  15. CYCLOPHOSPHAMIDE [Suspect]
     Indication: BURKITT'S LYMPHOMA
     Dosage: FOR 5 DAYS IN CYCLE 1
     Route: 042
  16. VINCRISTINE [Suspect]
     Dosage: ON DAY 1 OF CYCLE 2,4 AND 6
     Route: 042
  17. CYTARABINE [Suspect]
     Indication: BURKITT'S LEUKAEMIA
     Dosage: ON DAYS 4 AND 5 OF CYCLE 2,4 AND 6
     Route: 042
  18. DEXAMETHASONE SODIUM PHOSPHATE [Suspect]
     Indication: BURKITT'S LYMPHOMA
     Dosage: ON DAYS 1-5 OF CYCLE 3,5 AND 7
     Route: 042
  19. CYCLOPHOSPHAMIDE [Suspect]
     Dosage: DAYS 1-5 DURING CYCLE 3,5 AND 7
     Route: 042
  20. CYTARABINE [Suspect]
     Indication: BURKITT'S LYMPHOMA
     Dosage: ON DAYS 4 AND 5 OF CYCLE 2,4 AND 6
     Route: 042
  21. ETOPOSIDE [Suspect]
     Indication: BURKITT'S LEUKAEMIA
     Dosage: ON DAYS 4 AND 5 OF CYCLE 2,4 AND 6
     Route: 042
  22. VINCRISTINE [Suspect]
     Dosage: ON DAY 1 OF CYCLE 3,5 AND 7
     Route: 042
  23. RITUXIMAB [Suspect]
     Indication: BURKITT'S LYMPHOMA
     Dosage: DAY 8 ON CYCLE 2; DOAGE INCREASED TO 375 MG/M2 ON DAY 10 AND 12
     Route: 042
  24. DOXORUBICIN HCL [Suspect]
     Indication: BURKITT'S LYMPHOMA
     Dosage: ON DAYS 4 AND 5 OF CYCLE 3,5 AND 7
     Route: 042
  25. IFOSFAMIDE [Suspect]
     Indication: BURKITT'S LYMPHOMA
     Dosage: ON DAYS 1-5 IN CYCLE 2,4 AND 6
     Route: 042
  26. METHOTREXATE [Suspect]
     Dosage: ON DAY 1 OF CYCLE 3,5 AND 7
     Route: 042
  27. DOXORUBICIN HCL [Suspect]
     Indication: BURKITT'S LEUKAEMIA
     Dosage: ON DAYS 4 AND 5 OF CYCLE 3,5 AND 7
     Route: 042
  28. CYCLOPHOSPHAMIDE [Suspect]
     Indication: BURKITT'S LEUKAEMIA
     Dosage: FOR 5 DAYS IN CYCLE 1
     Route: 042
  29. CYCLOPHOSPHAMIDE [Suspect]
     Dosage: DAYS 1-5 DURING CYCLE 3,5 AND 7
     Route: 042
  30. IFOSFAMIDE [Suspect]
     Indication: BURKITT'S LEUKAEMIA
     Dosage: ON DAYS 1-5 IN CYCLE 2,4 AND 6
     Route: 042
  31. METHOTREXATE [Suspect]
     Dosage: ON DAY 1 OF CYCLE 2,4 AND 6
     Route: 042
  32. VINCRISTINE [Suspect]
     Indication: BURKITT'S LEUKAEMIA
     Dosage: ON DAY 1 OF CYCLE 2,4 AND 6
     Route: 042
  33. LEUCOVORIN CALCIUM [Concomitant]
     Indication: PROPHYLAXIS
     Route: 042

REACTIONS (17)
  - TUMOUR LYSIS SYNDROME [None]
  - DYSPNOEA [None]
  - CONDITION AGGRAVATED [None]
  - FATIGUE [None]
  - INFECTION [None]
  - ERYTHEMA MULTIFORME [None]
  - CENTRAL NERVOUS SYSTEM HAEMORRHAGE [None]
  - PULMONARY HAEMORRHAGE [None]
  - NAUSEA [None]
  - RASH [None]
  - DIARRHOEA [None]
  - RESPIRATORY FAILURE [None]
  - HAEMATOTOXICITY [None]
  - STOMATITIS [None]
  - VOMITING [None]
  - NEUROLOGICAL SYMPTOM [None]
  - GASTROINTESTINAL TOXICITY [None]
